FAERS Safety Report 9522100 (Version 2)
Quarter: 2013Q4

REPORT INFORMATION
  Report Type: Spontaneous
  Country: SI (occurrence: SI)
  Receive Date: 20130913
  Receipt Date: 20131004
  Transmission Date: 20140711
  Serious: Yes (Death, Life-Threatening, Hospitalization, Other)
  Sender: FDA-Public Use
  Company Number: SI-009507513-1309SVN005693

PATIENT
  Age: 57 Year
  Sex: Male

DRUGS (4)
  1. JANUMET [Suspect]
     Indication: DIABETES MELLITUS
     Dosage: 50/1000 MG, BID, TOTAL DAILY DOSE: 100/2000MG
     Dates: start: 20110804, end: 20121109
  2. INSULIN [Suspect]
     Dosage: UNK
  3. TERTENSIF SR [Concomitant]
     Dosage: UNK
  4. TARKA [Concomitant]
     Dosage: UNK

REACTIONS (1)
  - Pancreatic carcinoma [Fatal]
